FAERS Safety Report 18717315 (Version 1)
Quarter: 2021Q1

REPORT INFORMATION
  Report Type: Spontaneous
  Country: CA (occurrence: CA)
  Receive Date: 20210108
  Receipt Date: 20210108
  Transmission Date: 20210419
  Serious: Yes (Other)
  Sender: FDA-Public Use
  Company Number: CA-TAKEDA-2021TUS000062

PATIENT
  Age: 64 Year
  Sex: Female

DRUGS (1)
  1. VONVENDI [Suspect]
     Active Substance: VON WILLEBRAND FACTOR (RECOMBINANT)
     Indication: VON WILLEBRAND^S DISEASE
     Dosage: 500 INTERNATIONAL UNIT
     Route: 042

REACTIONS (4)
  - Abdominal pain [Unknown]
  - Haematuria [Unknown]
  - Hot flush [Unknown]
  - Urinary tract infection [Unknown]
